FAERS Safety Report 16668704 (Version 2)
Quarter: 2019Q3

REPORT INFORMATION
  Report Type: Report from Study
  Country: DE (occurrence: DE)
  Receive Date: 20190805
  Receipt Date: 20190819
  Transmission Date: 20191004
  Serious: Yes (Life-Threatening, Hospitalization)
  Sender: FDA-Public Use
  Company Number: DE-CELGENEUS-DEU-20190702279

PATIENT
  Age: 7 Decade
  Sex: Male
  Weight: 80 kg

DRUGS (12)
  1. AMPHOTERICIN [Concomitant]
     Active Substance: AMPHOTERICIN B
     Indication: ANTIFUNGAL PROPHYLAXIS
     Dosage: 300 MILLIGRAM
     Route: 048
     Dates: start: 20190705
  2. CLEXANE [Concomitant]
     Active Substance: ENOXAPARIN SODIUM
     Indication: ANTICOAGULANT THERAPY
     Dosage: 80 MILLIGRAM
     Route: 058
     Dates: start: 20190628, end: 20190628
  3. IBUPROFEN. [Concomitant]
     Active Substance: IBUPROFEN
     Indication: SYSTEMIC INFLAMMATORY RESPONSE SYNDROME
  4. CYCLOPHOSPHAMIDE. [Suspect]
     Active Substance: CYCLOPHOSPHAMIDE
     Indication: HAEMATOPOIETIC STEM CELL MOBILISATION
     Route: 065
     Dates: start: 20190628, end: 20190628
  5. COTRIMOXAZOL SULFAMETHOXAZOL [Concomitant]
     Indication: ANTIFUNGAL PROPHYLAXIS
     Dosage: 960MG/800MG
     Route: 048
     Dates: end: 20190705
  6. IBUPROFEN. [Concomitant]
     Active Substance: IBUPROFEN
     Indication: PAIN
     Dosage: 1200 MILLIGRAM
     Route: 048
     Dates: start: 20190708, end: 20190708
  7. LENALIDOMIDE [Suspect]
     Active Substance: LENALIDOMIDE
     Indication: PLASMA CELL MYELOMA
     Dosage: 25 MILLIGRAM
     Route: 048
     Dates: start: 20190401, end: 20190616
  8. FILGRASTIM [Suspect]
     Active Substance: FILGRASTIM
     Route: 065
     Dates: start: 20190710, end: 20190710
  9. DEXAMETHASONE. [Suspect]
     Active Substance: DEXAMETHASONE
     Indication: PLASMA CELL MYELOMA
     Dosage: 40 MILLIGRAM
     Route: 041
     Dates: start: 20190401, end: 20190617
  10. CARFILZOMIB [Suspect]
     Active Substance: CARFILZOMIB
     Indication: PLASMA CELL MYELOMA
     Dosage: 72 MILLIGRAM
     Route: 041
     Dates: start: 20190401, end: 20190612
  11. FILGRASTIM [Suspect]
     Active Substance: FILGRASTIM
     Indication: HAEMATOPOIETIC STEM CELL MOBILISATION
     Route: 058
     Dates: start: 20190702, end: 20190702
  12. ACICLOVIR [Concomitant]
     Active Substance: ACYCLOVIR
     Indication: ANTIVIRAL PROPHYLAXIS
     Dosage: 800 MILLIGRAM
     Route: 048
     Dates: start: 20190706

REACTIONS (2)
  - Systemic inflammatory response syndrome [Recovered/Resolved]
  - Febrile neutropenia [Recovered/Resolved]

NARRATIVE: CASE EVENT DATE: 20190705
